FAERS Safety Report 6267592-1 (Version None)
Quarter: 2009Q3

REPORT INFORMATION
  Report Type: 
  Country: None (occurrence: None)
  Receive Date: 20090714
  Receipt Date: 20090708
  Transmission Date: 20100115
  Serious: Yes (Hospitalization)
  Sender: FDA-Public Use
  Company Number: FR-AMGEN-US347519

PATIENT
  Age: 73 Year
  Sex: Female

DRUGS (8)
  1. ENBREL [Suspect]
     Indication: RHEUMATOID ARTHRITIS
     Dosage: 50 MG LYOPHILIZED (FREQUENCY UNKNOWN)
     Route: 058
     Dates: start: 20040517
  2. ENBREL [Suspect]
     Dosage: 50 MG PREFILLED SYRINGE (FREQUENCY UNKNOWN)
     Route: 058
     Dates: end: 20090312
  3. METHOTREXATE [Suspect]
     Dosage: VARIABLE DOSES UP TO 12.5 MG TOTAL WEEKLY AND THEN 7.5 TO 10 MG TOTAL WEEKLY WHILE ON ENBREL
     Route: 048
     Dates: start: 19900101
  4. SPECIAFOLDINE [Concomitant]
     Dosage: UNKNOWN
  5. VASTEN [Concomitant]
     Dosage: UNKNOWN
  6. ENALAPRIL MALEATE AND HYDROCHLOROTHIAZIDE [Concomitant]
     Dosage: UNKNOWN
  7. PLAVIX [Concomitant]
     Dosage: UNKNOWN
  8. ACTONEL [Concomitant]
     Dosage: UNKNOWN
     Route: 048

REACTIONS (4)
  - CHRONIC LYMPHOCYTIC LEUKAEMIA [None]
  - CONDITION AGGRAVATED [None]
  - ESSENTIAL THROMBOCYTHAEMIA [None]
  - RHEUMATOID ARTHRITIS [None]
